FAERS Safety Report 8203261 (Version 4)
Quarter: 2012Q4

REPORT INFORMATION
  Report Type: Report from Study
  Country: US (occurrence: US)
  Receive Date: 20111027
  Receipt Date: 20121219
  Transmission Date: 20130627
  Serious: Yes (Other)
  Sender: FDA-Public Use
  Company Number: US-PFIZER INC-2011256582

PATIENT
  Sex: Female

DRUGS (1)
  1. LYRICA [Suspect]
     Dosage: UNK

REACTIONS (5)
  - Road traffic accident [Unknown]
  - Somnolence [Unknown]
  - Post-traumatic neck syndrome [Unknown]
  - Malaise [Unknown]
  - Fatigue [Unknown]
